FAERS Safety Report 20867238 (Version 1)
Quarter: 2022Q2

REPORT INFORMATION
  Report Type: Spontaneous
  Country: US (occurrence: None)
  Receive Date: 20220523
  Receipt Date: 20220523
  Transmission Date: 20220721
  Serious: Yes (Other)
  Sender: FDA-Public Use
  Company Number: None

PATIENT
  Age: 11 Year
  Sex: Female

DRUGS (3)
  1. FLAGYL [Suspect]
     Active Substance: METRONIDAZOLE\METRONIDAZOLE HYDROCHLORIDE
     Indication: Vulvovaginal discomfort
     Dosage: FREQUENCY : TWICE A DAY;?
     Route: 048
     Dates: start: 20220513, end: 20220516
  2. MELATONIN [Concomitant]
     Active Substance: MELATONIN
  3. VITAMINS [Concomitant]
     Active Substance: VITAMINS

REACTIONS (3)
  - Hallucination, visual [None]
  - Feeling abnormal [None]
  - Anxiety [None]

NARRATIVE: CASE EVENT DATE: 20220516
